FAERS Safety Report 20852003 (Version 1)
Quarter: 2022Q2

REPORT INFORMATION
  Report Type: Spontaneous
  Country: AU (occurrence: AU)
  Receive Date: 20220520
  Receipt Date: 20220520
  Transmission Date: 20220721
  Serious: Yes (Hospitalization)
  Sender: FDA-Public Use
  Company Number: AU-BoehringerIngelheim-2022-BI-170440

PATIENT

DRUGS (1)
  1. JARDIANCE [Suspect]
     Active Substance: EMPAGLIFLOZIN
     Indication: Product used for unknown indication
     Route: 065
     Dates: start: 202109

REACTIONS (5)
  - Blood pressure decreased [Unknown]
  - Dyspnoea [Unknown]
  - Constipation [Recovering/Resolving]
  - Rash [Recovering/Resolving]
  - Product quality issue [Recovering/Resolving]

NARRATIVE: CASE EVENT DATE: 20210101
